FAERS Safety Report 5188602-9 (Version None)
Quarter: 2006Q4

REPORT INFORMATION
  Report Type: 
  Country: None (occurrence: None)
  Receive Date: 20061214
  Receipt Date: 20061203
  Transmission Date: 20070319
  Serious: Yes (Other)
  Sender: FDA-Public Use
  Company Number: 2006149438

PATIENT
  Age: 47 Year
  Sex: Female
  Weight: 56.6996 kg

DRUGS (2)
  1. CHANTIX [Suspect]
     Indication: SMOKING CESSATION THERAPY
     Dosage: 2 MG (1 MG,2 IN 1 D), ORAL
     Route: 048
     Dates: start: 20061101
  2. LIPITOR [Suspect]

REACTIONS (2)
  - NAUSEA [None]
  - VISUAL DISTURBANCE [None]
